FAERS Safety Report 10920270 (Version 2)
Quarter: 2015Q2

REPORT INFORMATION
  Report Type: Report from Study
  Country: US (occurrence: US)
  Receive Date: 20150317
  Receipt Date: 20150407
  Transmission Date: 20150821
  Serious: Yes (Other)
  Sender: FDA-Public Use
  Company Number: US-BIOGENIDEC-2015BI030021

PATIENT
  Sex: Male

DRUGS (1)
  1. TYSABRI [Suspect]
     Active Substance: NATALIZUMAB
     Indication: RELAPSING-REMITTING MULTIPLE SCLEROSIS
     Route: 042
     Dates: start: 20120417, end: 20150127

REACTIONS (1)
  - Malignant melanoma [Recovered/Resolved]

NARRATIVE: CASE EVENT DATE: 2015
